FAERS Safety Report 16592261 (Version 6)
Quarter: 2020Q2

REPORT INFORMATION
  Report Type: Other
  Country: CA (occurrence: CA)
  Receive Date: 20190718
  Receipt Date: 20200518
  Transmission Date: 20200713
  Serious: Yes (Other)
  Sender: FDA-Public Use
  Company Number: CA-BECTON DICKINSON-2019BDN00272

PATIENT
  Age: 42 Year
  Sex: Female
  Weight: 81 kg

DRUGS (45)
  1. CETIRIZINE DIHYDROCHLORIDE [Concomitant]
     Active Substance: CETIRIZINE HYDROCHLORIDE
  2. D-ALPHA TOCOPHEROL [Concomitant]
     Active Substance: .ALPHA.-TOCOPHEROL, D-
  3. IBUPROFEN. [Concomitant]
     Active Substance: IBUPROFEN
  4. VITAMIN D3 [Concomitant]
     Active Substance: CHOLECALCIFEROL
  5. ACTEMRA [Suspect]
     Active Substance: TOCILIZUMAB
     Dosage: UNK
  6. ENBREL [Suspect]
     Active Substance: ETANERCEPT
     Indication: RHEUMATOID ARTHRITIS
     Route: 058
  7. HYDROXYCHLOROQUINE [Concomitant]
     Active Substance: HYDROXYCHLOROQUINE
  8. TOCOPHEROL [Concomitant]
     Active Substance: TOCOPHEROL
  9. VITAMIN E [Concomitant]
     Active Substance: .ALPHA.-TOCOPHEROL
  10. CHLORAPREP [Suspect]
     Active Substance: CHLORHEXIDINE GLUCONATE\ISOPROPYL ALCOHOL
     Indication: INFECTION PROPHYLAXIS
     Route: 061
  11. CHLORHEXIDINE [Suspect]
     Active Substance: CHLORHEXIDINE
     Dosage: UNK
  12. ERGOCALCIFEROL. [Concomitant]
     Active Substance: ERGOCALCIFEROL
  13. METHOTREXATE SODIUM. [Suspect]
     Active Substance: METHOTREXATE SODIUM
  14. OXYCODONE [Suspect]
     Active Substance: OXYCODONE
  15. OXYCODONE HYDROCHLORIDE. [Suspect]
     Active Substance: OXYCODONE HYDROCHLORIDE
     Dosage: UNK
  16. OXYCODONE TEREPHTHALATE [Suspect]
     Active Substance: OXYCODONE TEREPHTHALATE
     Dosage: UNK
  17. CETIRIZINE HYDROCHLORIDE. [Concomitant]
     Active Substance: CETIRIZINE HYDROCHLORIDE
  18. MIXED TOCOPHEROL VITAMIN E [Concomitant]
  19. PANTOPRAZOLE [Concomitant]
     Active Substance: PANTOPRAZOLE
     Dosage: UNK
     Route: 042
  20. PREDNISONE. [Concomitant]
     Active Substance: PREDNISONE
  21. ACETAMINOPHEN. [Suspect]
     Active Substance: ACETAMINOPHEN
     Dosage: UNK
  22. LEFLUNOMIDE. [Suspect]
     Active Substance: LEFLUNOMIDE
     Route: 048
  23. ORENCIA [Suspect]
     Active Substance: ABATACEPT
     Dosage: UNK
  24. PERIOGARD [Suspect]
     Active Substance: CHLORHEXIDINE GLUCONATE
     Dosage: UNK
  25. PERIOGARD ALCOHOL FREE [Suspect]
     Active Substance: CHLORHEXIDINE GLUCONATE
     Route: 002
  26. PANTOPRAZOLE SODIUM FOR INJECTION [Concomitant]
     Active Substance: PANTOPRAZOLE SODIUM
     Route: 042
  27. REACTINE [Concomitant]
  28. VENTOLIN [Concomitant]
     Active Substance: ALBUTEROL SULFATE
  29. ZOPICLONE [Concomitant]
     Active Substance: ZOPICLONE
  30. ARAVA [Suspect]
     Active Substance: LEFLUNOMIDE
     Dosage: UNK
  31. SALBUTAMOL [Concomitant]
     Active Substance: ALBUTEROL
  32. VITAMIN D3 1000 IU [Concomitant]
  33. CHLORHEXIDINE GLUCONATE ORAL RINSE [Suspect]
     Active Substance: CHLORHEXIDINE GLUCONATE
  34. CIMZIA [Suspect]
     Active Substance: CERTOLIZUMAB PEGOL
     Indication: RHEUMATOID ARTHRITIS
     Dosage: 400 MG
     Route: 058
  35. METHOTREXATE. [Suspect]
     Active Substance: METHOTREXATE
     Dosage: UNK
  36. CHOLECALCIFEROL [Concomitant]
     Active Substance: CHOLECALCIFEROL
  37. DESOGESTREL/ETHINYL ESTRADIOL [Concomitant]
     Active Substance: DESOGESTREL\ETHINYL ESTRADIOL
  38. FISH OIL [Concomitant]
     Active Substance: FISH OIL
  39. OXYCODONE HCL CR [Suspect]
     Active Substance: OXYCODONE HYDROCHLORIDE
  40. SIMPONI [Suspect]
     Active Substance: GOLIMUMAB
     Dosage: UNK
     Route: 058
  41. ASCORBIC ACID. [Concomitant]
     Active Substance: ASCORBIC ACID
  42. CETIRIZINE [Concomitant]
     Active Substance: CETIRIZINE HYDROCHLORIDE
  43. PANTOPRAZOLE SODIUM ANHYDROUS [Concomitant]
     Active Substance: PANTOPRAZOLE SODIUM ANHYDROUS
  44. TYLENOL [Concomitant]
     Active Substance: ACETAMINOPHEN
  45. VITAMIN C [Concomitant]
     Active Substance: ASCORBIC ACID

REACTIONS (22)
  - Body temperature increased [Unknown]
  - Asthenia [Unknown]
  - Back pain [Unknown]
  - Joint swelling [Unknown]
  - Pain [Unknown]
  - Pruritus [Unknown]
  - Insomnia [Unknown]
  - Contraindicated product administered [Unknown]
  - Muscle spasticity [Unknown]
  - Night sweats [Unknown]
  - Off label use [Unknown]
  - Peripheral swelling [Unknown]
  - Vomiting [Unknown]
  - Abdominal pain upper [Unknown]
  - Ear pain [Unknown]
  - Sinusitis [Unknown]
  - Lower respiratory tract infection [Unknown]
  - Rash [Unknown]
  - Diarrhoea [Unknown]
  - Headache [Unknown]
  - Respiratory disorder [Unknown]
  - Urticaria [Unknown]
